FAERS Safety Report 21293904 (Version 1)
Quarter: 2022Q3

REPORT INFORMATION
  Report Type: Spontaneous
  Country: ES (occurrence: ES)
  Receive Date: 20220905
  Receipt Date: 20220905
  Transmission Date: 20221027
  Serious: Yes (Hospitalization)
  Sender: FDA-Public Use
  Company Number: None

PATIENT
  Age: 50 Year
  Sex: Female

DRUGS (12)
  1. FLUOROURACIL [Suspect]
     Active Substance: FLUOROURACIL
     Indication: Gastric cancer
     Dosage: 6800.0 MG EVERY 21 DAYS
     Dates: start: 20210423
  2. PREGABALIN [Concomitant]
     Active Substance: PREGABALIN
     Indication: Neoplasm
     Dosage: 50 MG, EFG, 56 CAPSULES, 50.0 MG EVERY 8 HOURS
     Dates: start: 20201215
  3. RUPATADINE FUMARATE [Concomitant]
     Active Substance: RUPATADINE FUMARATE
     Indication: Dermatitis
     Dosage: 10 MG , 20 TABLETS, 10.0 MG AT BREAKFAST
     Dates: start: 20140627
  4. ZOLPIDEM [Concomitant]
     Active Substance: ZOLPIDEM TARTRATE
     Indication: Neoplasm
     Dosage: 10 MG COATED TABLETS EFG, 30 TABLETS, 10.0 MG EVERY 24 H NOC
     Dates: start: 20210108
  5. IBUPROFEN [Concomitant]
     Active Substance: IBUPROFEN
     Indication: Neoplasm
     Dosage: 400 MG, EFG, 30 TABLETS, 400.0 MG EVERY 8 HOURS
     Dates: start: 20210108
  6. TAMOXIFEN [Concomitant]
     Active Substance: TAMOXIFEN
     Indication: Neoplasm
     Dosage: 20 MG EFG, 60 TABLETS, 20.0 MG EVERY 24 HOURS
     Dates: start: 20190813
  7. BUDESONIDE [Concomitant]
     Active Substance: BUDESONIDE
     Indication: Rhinitis allergic
     Dosage: 50 MICROGRAMS/ FORINHALATION IN PRESSURIZED CONTAINER, 1 INHALER OF 200 DOSES, 50.0
     Route: 055
     Dates: start: 20130307
  8. OXYCODONE HYDROCHLORIDE [Concomitant]
     Active Substance: OXYCODONE HYDROCHLORIDE
     Indication: Neoplasm
     Dosage: 5 MG , 28 CAPSULES, 5.0 MG EVERY 6 HOURS
     Dates: start: 20201215
  9. OMEPRAZOLE [Concomitant]
     Active Substance: OMEPRAZOLE
     Indication: Neoplasm
     Dosage: 20 MG EFG, 56 CAPSULES, 20.0 MG AT BREAKFAST
     Dates: start: 20201118
  10. ALBUTEROL [Concomitant]
     Active Substance: ALBUTEROL
     Indication: Genitourinary tract infection
     Dosage: 100 MICROGRAMS/ IN PRESSURIZED CONTAINER, 1 INHALER OF 200 DOSES, 100.0 MCG EVERY 8 HOURS
     Route: 055
     Dates: start: 20171211
  11. ACETAMINOPHEN [Concomitant]
     Active Substance: ACETAMINOPHEN
     Indication: Neoplasm
     Dosage: 1 G EFG, 40 TABLETS, 1.0 G AT BREAKFAST, LUNCH AND DINNER
     Dates: start: 20190326
  12. PREGABALIN [Concomitant]
     Active Substance: PREGABALIN
     Indication: Neoplasm
     Dosage: 150 MG, EFG, 56 CAPSULES, 50.0 MG EVERY 8 HOURS
     Dates: start: 20201117

REACTIONS (3)
  - Nausea [Recovered/Resolved]
  - Malaise [Recovered/Resolved]
  - Dyspnoea [Recovered/Resolved]

NARRATIVE: CASE EVENT DATE: 20210428
